FAERS Safety Report 22285130 (Version 8)
Quarter: 2023Q4

REPORT INFORMATION
  Report Type: Report from Study
  Country: US (occurrence: US)
  Receive Date: 20230504
  Receipt Date: 20231014
  Transmission Date: 20240110
  Serious: Yes (Death, Hospitalization)
  Sender: FDA-Public Use
  Company Number: US-BoehringerIngelheim-2022-BI-177006

PATIENT
  Age: 72 Year
  Sex: Female

DRUGS (2)
  1. OFEV [Suspect]
     Active Substance: NINTEDANIB
     Indication: Idiopathic pulmonary fibrosis
     Dosage: LOT NO 200128,203426,204120A
     Route: 048
     Dates: start: 20220617
  2. AMLODIPINE [Concomitant]
     Active Substance: AMLODIPINE BESYLATE
     Indication: Product used for unknown indication

REACTIONS (24)
  - Death [Fatal]
  - Haematochezia [Unknown]
  - Idiopathic pulmonary fibrosis [Not Recovered/Not Resolved]
  - Urinary tract infection [Unknown]
  - Renal disorder [Unknown]
  - Fall [Unknown]
  - Disorientation [Unknown]
  - Diarrhoea [Recovered/Resolved]
  - Biliary colic [Unknown]
  - Malaise [Not Recovered/Not Resolved]
  - Diarrhoea [Not Recovered/Not Resolved]
  - Cough [Unknown]
  - Dysphonia [Unknown]
  - Aphonia [Unknown]
  - Headache [Not Recovered/Not Resolved]
  - Cholelithiasis [Unknown]
  - Rectal haemorrhage [Unknown]
  - Dizziness [Unknown]
  - Neuropathy peripheral [Unknown]
  - Product administration error [Unknown]
  - Dyspnoea [Not Recovered/Not Resolved]
  - Incorrect product administration duration [Unknown]
  - Multiple allergies [Unknown]
  - Disease complication [Unknown]

NARRATIVE: CASE EVENT DATE: 20230101
